FAERS Safety Report 4547142-8 (Version None)
Quarter: 2005Q1

REPORT INFORMATION
  Report Type: 
  Country: None (occurrence: None)
  Receive Date: 20050105
  Receipt Date: 20041223
  Transmission Date: 20050727
  Serious: Yes (Hospitalization, Other)
  Sender: FDA-Public Use
  Company Number: 2004119564

PATIENT
  Age: 22 Year
  Sex: Female
  Weight: 56.246 kg

DRUGS (2)
  1. XANAX [Suspect]
     Indication: ANXIETY
     Dosage: 4 MG (2 MG, BID INTERVAL:DAILY), ORAL
     Route: 048
     Dates: start: 20000101
  2. TYLENOL [Concomitant]

REACTIONS (5)
  - CONVULSION [None]
  - DRUG EXPOSURE DURING PREGNANCY [None]
  - PELVIC INFLAMMATORY DISEASE [None]
  - PREGNANCY [None]
  - TOOTH ABSCESS [None]
